FAERS Safety Report 5187512-0 (Version None)
Quarter: 2006Q4

REPORT INFORMATION
  Report Type: 
  Country: None (occurrence: None)
  Receive Date: 20061220
  Receipt Date: 20050930
  Transmission Date: 20070319
  Serious: No
  Sender: FDA-Public Use
  Company Number: US-AMGEN-US152657

PATIENT
  Age: 56 Year
  Sex: Female

DRUGS (2)
  1. ENBREL [Suspect]
     Indication: PSORIATIC ARTHROPATHY
     Route: 065
     Dates: start: 20050301
  2. METHOTREXATE [Concomitant]
     Route: 065
     Dates: start: 20050201

REACTIONS (1)
  - THERAPEUTIC RESPONSE DECREASED [None]
